FAERS Safety Report 12638044 (Version 6)
Quarter: 2019Q1

REPORT INFORMATION
  Report Type: Report from Study
  Country: US (occurrence: US)
  Receive Date: 20160809
  Receipt Date: 20190211
  Transmission Date: 20190417
  Serious: No
  Sender: FDA-Public Use
  Company Number: US-SA-2016SA113307

PATIENT
  Age: 73 Year
  Sex: Female

DRUGS (3)
  1. ALIROCUMAB [Suspect]
     Active Substance: ALIROCUMAB
     Dosage: 75 UNK
     Route: 058
     Dates: end: 201709
  2. ALIROCUMAB [Suspect]
     Active Substance: ALIROCUMAB
     Dosage: 75 MG/ML, QOW
     Route: 058
  3. ALIROCUMAB [Suspect]
     Active Substance: ALIROCUMAB
     Indication: HYPERLIPIDAEMIA
     Dosage: 75 MG, UNK
     Route: 058
     Dates: start: 20160425

REACTIONS (17)
  - Vaginal discharge [Unknown]
  - Hot flush [Unknown]
  - Myalgia [Unknown]
  - Back pain [Unknown]
  - Platelet count decreased [Recovered/Resolved]
  - Food craving [Unknown]
  - Arthralgia [Unknown]
  - Oropharyngeal pain [Unknown]
  - Heart rate increased [Unknown]
  - Stress [Unknown]
  - Arthralgia [Unknown]
  - Weight fluctuation [Unknown]
  - Stomatitis [Unknown]
  - Headache [Recovering/Resolving]
  - Weight increased [Recovering/Resolving]
  - Contusion [Unknown]
  - Cough [Unknown]

NARRATIVE: CASE EVENT DATE: 2016
